FAERS Safety Report 9774161 (Version 3)
Quarter: 2014Q1

REPORT INFORMATION
  Report Type: Spontaneous
  Country: IT (occurrence: IT)
  Receive Date: 20131220
  Receipt Date: 20140310
  Transmission Date: 20141002
  Serious: Yes (Hospitalization)
  Sender: FDA-Public Use
  Company Number: IT-BRISTOL-MYERS SQUIBB COMPANY-19903855

PATIENT
  Age: 79 Year
  Sex: Male

DRUGS (9)
  1. COUMADIN TABS 5 MG [Suspect]
     Indication: ATRIAL FIBRILLATION
     Route: 048
     Dates: start: 20120413, end: 20130911
  2. METFORMIN HCL [Concomitant]
     Indication: TYPE 2 DIABETES MELLITUS
     Route: 048
  3. ALLOPURINOL [Concomitant]
     Route: 048
  4. TAPAZOLE [Concomitant]
     Indication: HYPERTHYROIDISM
     Dosage: TABS
     Route: 048
  5. TORVAST [Concomitant]
     Indication: DYSLIPIDAEMIA
     Dosage: TABS
     Route: 048
  6. MINITRAN [Concomitant]
     Route: 062
  7. LASIX [Concomitant]
     Dosage: TABS
  8. KANRENOL [Concomitant]
     Dosage: TABS
     Route: 048
  9. SOLOSA [Concomitant]
     Indication: TYPE 2 DIABETES MELLITUS
     Dosage: TABS
     Route: 048

REACTIONS (3)
  - Iron deficiency anaemia [Recovering/Resolving]
  - Asthenia [Recovering/Resolving]
  - Gastritis [Recovering/Resolving]
